FAERS Safety Report 16032187 (Version 1)
Quarter: 2019Q1

REPORT INFORMATION
  Report Type: Other
  Country: None (occurrence: US)
  Receive Date: 20190304
  Receipt Date: 20190304
  Transmission Date: 20190418
  Serious: Yes (Death, Hospitalization)
  Sender: FDA-Public Use
  Company Number: US-MEDAC PHARMA, INC.-2063534

PATIENT
  Age: 12 Year
  Sex: Male
  Weight: 76.8 kg

DRUGS (5)
  1. ONCASPAR [Suspect]
     Active Substance: PEGASPARGASE
  2. VINCRISTINE SULFATE. [Suspect]
     Active Substance: VINCRISTINE SULFATE
  3. CYTARABINE. [Suspect]
     Active Substance: CYTARABINE
  4. PREDNISONE. [Suspect]
     Active Substance: PREDNISONE
  5. METHOTREXATE. [Suspect]
     Active Substance: METHOTREXATE

REACTIONS (5)
  - Renal failure [Fatal]
  - Rectal haemorrhage [Fatal]
  - Oxygen saturation decreased [Unknown]
  - Staphylococcal bacteraemia [Unknown]
  - Mucosal haemorrhage [Fatal]

NARRATIVE: CASE EVENT DATE: 20181201
